FAERS Safety Report 18470996 (Version 3)
Quarter: 2020Q4

REPORT INFORMATION
  Report Type: Spontaneous
  Country: DE (occurrence: DE)
  Receive Date: 20201105
  Receipt Date: 20201125
  Transmission Date: 20210114
  Serious: Yes (Death, Hospitalization)
  Sender: FDA-Public Use
  Company Number: DE-ROCHE-2701981

PATIENT
  Age: 73 Year
  Sex: Female
  Weight: 94 kg

DRUGS (11)
  1. HEMLIBRA [Suspect]
     Active Substance: EMICIZUMAB-KXWH
     Indication: ACQUIRED HAEMOPHILIA
     Route: 058
     Dates: start: 20201009
  2. HAEMOCOMPLETTAN P [Concomitant]
     Active Substance: FIBRINOGEN HUMAN
     Route: 040
     Dates: start: 20200926
  3. RITUXIMAB. [Suspect]
     Active Substance: RITUXIMAB
     Indication: ACQUIRED HAEMOPHILIA
     Route: 065
     Dates: start: 20200925
  4. FIBROGAMMIN P [Concomitant]
     Active Substance: FACTOR XIII CONCENTRATE (HUMAN)
     Route: 040
     Dates: start: 20200926
  5. RITUXIMAB. [Suspect]
     Active Substance: RITUXIMAB
     Indication: FACTOR VIII DEFICIENCY
     Route: 065
     Dates: start: 20201002
  6. HEMLIBRA [Suspect]
     Active Substance: EMICIZUMAB-KXWH
     Indication: FACTOR VIII DEFICIENCY
     Route: 058
     Dates: start: 20201014
  7. RITUXIMAB. [Suspect]
     Active Substance: RITUXIMAB
     Route: 065
     Dates: start: 20201012
  8. PREDNISOLONE. [Concomitant]
     Active Substance: PREDNISOLONE
  9. CYCLOPHOSPHAMIDE. [Concomitant]
     Active Substance: CYCLOPHOSPHAMIDE
  10. FIBROGAMMIN P [Concomitant]
     Active Substance: FACTOR XIII CONCENTRATE (HUMAN)
     Route: 042
     Dates: start: 20201001
  11. NOVOSEVEN [Concomitant]
     Active Substance: COAGULATION FACTOR VIIA RECOMBINANT HUMAN
     Dosage: UP TO EVERY TWO HOURS
     Route: 040
     Dates: start: 20200924, end: 20201015

REACTIONS (14)
  - Swelling [Recovering/Resolving]
  - Atrial fibrillation [Unknown]
  - Infection [Unknown]
  - Haemoglobin decreased [Unknown]
  - Superior vena cava syndrome [Recovering/Resolving]
  - Multiple organ dysfunction syndrome [Fatal]
  - Haemorrhage [Unknown]
  - Sepsis [Unknown]
  - Klebsiella test positive [Unknown]
  - Haematoma [Unknown]
  - Intentional product use issue [Unknown]
  - Gastrointestinal haemorrhage [Recovered/Resolved]
  - Off label use [Unknown]
  - Drug level increased [Unknown]

NARRATIVE: CASE EVENT DATE: 20201014
